FAERS Safety Report 11966986 (Version 3)
Quarter: 2016Q1

REPORT INFORMATION
  Report Type: Spontaneous
  Country: LU (occurrence: LU)
  Receive Date: 20160127
  Receipt Date: 20160224
  Transmission Date: 20160526
  Serious: Yes (Other)
  Sender: FDA-Public Use
  Company Number: LU-JNJFOC-20160117622

PATIENT
  Age: 84 Year
  Sex: Female
  Weight: 65 kg

DRUGS (7)
  1. SPIRIVA [Concomitant]
     Active Substance: TIOTROPIUM BROMIDE MONOHYDRATE
     Indication: ASTHMA
     Dosage: MORE THAN 20 YEARS
     Route: 065
  2. ONBREZ [Concomitant]
     Active Substance: INDACATEROL
     Indication: ASTHMA
     Dosage: MORE THAN 20 YEARS
     Route: 065
  3. LORAMET [Concomitant]
     Active Substance: LORMETAZEPAM
     Route: 065
  4. STELARA [Suspect]
     Active Substance: USTEKINUMAB
     Indication: PSORIASIS
     Route: 058
     Dates: start: 20151216, end: 20160107
  5. XARELTO [Suspect]
     Active Substance: RIVAROXABAN
     Indication: EMBOLISM
     Route: 065
     Dates: start: 201401, end: 201512
  6. STELARA [Suspect]
     Active Substance: USTEKINUMAB
     Indication: PSORIASIS
     Dosage: APPROXIMATELY 7 INJECTIONS OF USTEKINUMAB WERE ADMINISTERED.
     Route: 058
     Dates: start: 20140618
  7. ACETAMINOPHEN. [Concomitant]
     Active Substance: ACETAMINOPHEN
     Route: 065

REACTIONS (1)
  - Toxic skin eruption [Not Recovered/Not Resolved]

NARRATIVE: CASE EVENT DATE: 20160107
